FAERS Safety Report 5887393-3 (Version None)
Quarter: 2008Q3

REPORT INFORMATION
  Report Type: 
  Country: None (occurrence: None)
  Receive Date: 20080915
  Receipt Date: 20080909
  Transmission Date: 20090109
  Serious: Yes (Other)
  Sender: FDA-Public Use
  Company Number: 2008SP018635

PATIENT
  Age: 61 Year
  Sex: Female
  Weight: 69.4003 kg

DRUGS (2)
  1. PEG-INTRON [Suspect]
     Indication: HEPATITIS C
     Dosage: SC
     Route: 058
     Dates: start: 20080729
  2. RIBAVIRIN [Suspect]
     Indication: HEPATITIS C
     Dosage: PO
     Route: 048
     Dates: start: 20080729

REACTIONS (5)
  - ANOREXIA [None]
  - DIVERTICULITIS [None]
  - DYSPEPSIA [None]
  - INFECTION [None]
  - WEIGHT DECREASED [None]
